FAERS Safety Report 10409151 (Version 2)
Quarter: 2014Q3

REPORT INFORMATION
  Report Type: Spontaneous
  Country: GB (occurrence: GB)
  Receive Date: 20140826
  Receipt Date: 20140902
  Transmission Date: 20150326
  Serious: No
  Sender: FDA-Public Use
  Company Number: GB-SA-2014SA114459

PATIENT
  Age: 10 Year
  Sex: Female

DRUGS (1)
  1. DESMOTABS [Suspect]
     Active Substance: DESMOPRESSIN
     Indication: ENURESIS
     Dosage: STRENGTH : 200 MCG
     Route: 048
     Dates: start: 20121012

REACTIONS (2)
  - Epistaxis [Recovered/Resolved]
  - Menorrhagia [Recovered/Resolved]
